FAERS Safety Report 17313403 (Version 1)
Quarter: 2020Q1

REPORT INFORMATION
  Report Type: Spontaneous
  Country: US (occurrence: US)
  Receive Date: 20200124
  Receipt Date: 20200124
  Transmission Date: 20200409
  Serious: Yes (Life-Threatening, Hospitalization, Other)
  Sender: FDA-Public Use
  Company Number: US-HIKMA PHARMACEUTICALS USA INC.-US-H14001-20-50461

PATIENT
  Age: 49 Year
  Sex: Male

DRUGS (2)
  1. AZATHIOPRINE. [Suspect]
     Active Substance: AZATHIOPRINE
     Indication: CROHN^S DISEASE
     Route: 065
  2. PREDNISONE. [Suspect]
     Active Substance: PREDNISONE
     Indication: CERVICAL RADICULOPATHY
     Route: 065

REACTIONS (4)
  - Pneumonia herpes viral [Unknown]
  - Herpes zoster meningitis [Unknown]
  - Varicella zoster virus infection [Unknown]
  - Acute respiratory distress syndrome [Unknown]
